FAERS Safety Report 16074714 (Version 2)
Quarter: 2019Q1

REPORT INFORMATION
  Report Type: Spontaneous
  Country: GB (occurrence: GB)
  Receive Date: 20190314
  Receipt Date: 20190327
  Transmission Date: 20190418
  Serious: Yes (Hospitalization)
  Sender: FDA-Public Use
  Company Number: GB-WHANIN PHARM. CO., LTD.-2019M1023611

PATIENT
  Sex: Male

DRUGS (1)
  1. CLOZARIL [Suspect]
     Active Substance: CLOZAPINE
     Indication: SCHIZOPHRENIA
     Dosage: UNK
     Route: 048
     Dates: start: 20070226, end: 20190212

REACTIONS (2)
  - Constipation [Unknown]
  - Small intestinal obstruction [Unknown]

NARRATIVE: CASE EVENT DATE: 2019
